FAERS Safety Report 10085580 (Version 1)
Quarter: 2014Q2

REPORT INFORMATION
  Report Type: Spontaneous
  Country: BR (occurrence: BR)
  Receive Date: 20140418
  Receipt Date: 20140418
  Transmission Date: 20141212
  Serious: Yes (Other)
  Sender: FDA-Public Use
  Company Number: BR-AMGEN INC.-BRASP2014028220

PATIENT
  Age: 39 Year
  Sex: Female

DRUGS (5)
  1. ENBREL [Suspect]
     Indication: RHEUMATOID ARTHRITIS
     Dosage: 50 MG, ONCE WEEKLY
     Route: 065
     Dates: start: 201310
  2. CHLOROQUINE [Concomitant]
     Indication: PAIN
     Dosage: 250 MG, UNK
     Dates: start: 2013
  3. FAMOTIDINE [Concomitant]
     Indication: PAIN
     Dosage: 40 MG, UNK
     Dates: start: 2013
  4. INDOMETACIN [Concomitant]
     Indication: PAIN
     Dosage: 30 MG, UNK
     Dates: start: 2013
  5. TRIAMCINOLONE [Concomitant]
     Indication: PAIN
     Dosage: 1 G, UNK
     Dates: start: 2013

REACTIONS (2)
  - Systemic lupus erythematosus [Unknown]
  - Arthralgia [Unknown]
